FAERS Safety Report 20923198 (Version 1)
Quarter: 2022Q2

REPORT INFORMATION
  Report Type: Spontaneous
  Country: US (occurrence: US)
  Receive Date: 20220607
  Receipt Date: 20220607
  Transmission Date: 20220721
  Serious: No
  Sender: FDA-Public Use
  Company Number: US-GLENMARK PHARMACEUTICALS-2022GMK071804

PATIENT

DRUGS (2)
  1. NYSTATIN AND TRIAMCINOLONE ACETONIDE [Suspect]
     Active Substance: NYSTATIN\TRIAMCINOLONE ACETONIDE
     Indication: Stevens-Johnson syndrome
     Dosage: UNK
     Route: 061
  2. BETAMETHASONE DIPROPIONATE [Concomitant]
     Active Substance: BETAMETHASONE DIPROPIONATE
     Indication: Stevens-Johnson syndrome
     Dosage: UNK
     Route: 065

REACTIONS (1)
  - Product use in unapproved indication [Unknown]
